FAERS Safety Report 23475341 (Version 1)
Quarter: 2024Q1

REPORT INFORMATION
  Report Type: Report from Study
  Country: US (occurrence: US)
  Receive Date: 20240204
  Receipt Date: 20240204
  Transmission Date: 20240410
  Serious: No
  Sender: FDA-Public Use
  Company Number: US-EXELIXIS-CABO-23059660

PATIENT

DRUGS (8)
  1. CABOMETYX [Suspect]
     Active Substance: CABOZANTINIB S-MALATE
     Indication: Renal cancer
     Dosage: 60 MG
     Route: 048
  2. CABOMETYX [Suspect]
     Active Substance: CABOZANTINIB S-MALATE
     Dosage: 60 MG ONE TABLET BY MOUTH ONCE DAILY AT THE SAME TIME FOR 21 DAYS ON, THEN 7 DAYS OFF.
     Route: 048
     Dates: start: 202212
  3. CABOMETYX [Suspect]
     Active Substance: CABOZANTINIB S-MALATE
     Dosage: 60 MG ONE TABLET BY MOUTH ONCE DAILY AT THE SAME TIME FOR 21 DAYS ON, THEN 7 DAYS OFF.
     Route: 048
     Dates: start: 202212
  4. CABOMETYX [Suspect]
     Active Substance: CABOZANTINIB S-MALATE
     Dosage: 40 MG, QD
     Route: 048
     Dates: start: 20230216
  5. VITAMIN B12 [Concomitant]
     Active Substance: CYANOCOBALAMIN
  6. LISINOPRIL [Concomitant]
     Active Substance: LISINOPRIL
  7. NIFEDIPINE [Concomitant]
     Active Substance: NIFEDIPINE
  8. VITAMIN D2 [Concomitant]
     Active Substance: ERGOCALCIFEROL

REACTIONS (5)
  - Blood creatinine abnormal [Unknown]
  - Glomerular filtration rate abnormal [Unknown]
  - Oral pain [Unknown]
  - Renal disorder [Unknown]
  - Inappropriate schedule of product administration [Unknown]

NARRATIVE: CASE EVENT DATE: 20221201
